FAERS Safety Report 9420891 (Version 1)
Quarter: 2013Q3

REPORT INFORMATION
  Report Type: Spontaneous
  Country: US (occurrence: US)
  Receive Date: 20130725
  Receipt Date: 20130725
  Transmission Date: 20140515
  Serious: No
  Sender: FDA-Public Use
  Company Number: US-ABBOTT-13P-163-1116179-00

PATIENT
  Sex: Female
  Weight: 72.64 kg

DRUGS (3)
  1. SYNTHROID [Suspect]
     Indication: AUTOIMMUNE THYROIDITIS
     Dates: start: 2005
  2. NASONEX [Concomitant]
     Indication: SEASONAL ALLERGY
  3. ASTELIN [Concomitant]
     Indication: PRODUCT USED FOR UNKNOWN INDICATION

REACTIONS (6)
  - Depressed mood [Unknown]
  - Fatigue [Unknown]
  - Sluggishness [Unknown]
  - Product quality issue [Unknown]
  - Drug ineffective [Unknown]
  - Drug ineffective [Unknown]
